FAERS Safety Report 6969945-2 (Version None)
Quarter: 2010Q3

REPORT INFORMATION
  Report Type: 
  Country: None (occurrence: None)
  Receive Date: 20100823
  Receipt Date: 20100709
  Transmission Date: 20110219
  Serious: No
  Sender: FDA-Public Use
  Company Number: 012716

PATIENT
  Sex: Female
  Weight: 65.8 kg

DRUGS (2)
  1. CIMZIA [Suspect]
     Indication: CROHN'S DISEASE
     Dosage: SUBCUTANEOUS
     Route: 058
     Dates: start: 20091201
  2. PROBIOTICA [Concomitant]

REACTIONS (4)
  - ALOPECIA [None]
  - CHOKING [None]
  - COUGH [None]
  - THROAT IRRITATION [None]
